FAERS Safety Report 13322610 (Version 1)
Quarter: 2017Q1

REPORT INFORMATION
  Report Type: Spontaneous
  Country: US (occurrence: US)
  Receive Date: 20170309
  Receipt Date: 20170309
  Transmission Date: 20170428
  Serious: No
  Sender: FDA-Public Use
  Company Number: US-TEVA-708891USA

PATIENT
  Sex: Male

DRUGS (2)
  1. BUSPIRONE [Suspect]
     Active Substance: BUSPIRONE HYDROCHLORIDE
     Dosage: 20 MILLIGRAM DAILY;
     Dates: start: 2016
  2. BUSPIRONE [Suspect]
     Active Substance: BUSPIRONE HYDROCHLORIDE
     Indication: ANXIETY
     Dosage: 10 MILLIGRAM DAILY;
     Dates: start: 2014

REACTIONS (3)
  - Drug effect increased [Unknown]
  - Drug ineffective [Unknown]
  - Mental disorder [Unknown]

NARRATIVE: CASE EVENT DATE: 2016
